FAERS Safety Report 8495258-6 (Version None)
Quarter: 2012Q3

REPORT INFORMATION
  Report Type: 
  Country: None (occurrence: None)
  Receive Date: 20120702
  Receipt Date: 20120702
  Transmission Date: 20120928
  Serious: Yes (Other)
  Sender: FDA-Public Use
  Company Number: None

PATIENT
  Sex: Female
  Weight: 52.1637 kg

DRUGS (3)
  1. ATENOLOL [Concomitant]
  2. KARIVA [Suspect]
     Indication: EMOTIONAL DISORDER
     Dosage: .15MG/.2MG ONCE A DAY PO
     Route: 048
     Dates: start: 20110215, end: 20120330
  3. KARIVA [Suspect]
     Indication: MENORRHAGIA
     Dosage: .15MG/.2MG ONCE A DAY PO
     Route: 048
     Dates: start: 20110215, end: 20120330

REACTIONS (15)
  - PRESYNCOPE [None]
  - DIZZINESS [None]
  - ARTHRALGIA [None]
  - GASTROOESOPHAGEAL REFLUX DISEASE [None]
  - FIBROMYALGIA [None]
  - CONFUSIONAL STATE [None]
  - SLEEP DISORDER [None]
  - INFLUENZA LIKE ILLNESS [None]
  - PAIN [None]
  - IRRITABLE BOWEL SYNDROME [None]
  - NEURALGIA [None]
  - CONSTIPATION [None]
  - MIGRAINE [None]
  - GLOSSODYNIA [None]
  - ORAL DISCOMFORT [None]
